FAERS Safety Report 6589475-X (Version None)
Quarter: 2010Q1

REPORT INFORMATION
  Report Type: 
  Country: None (occurrence: None)
  Receive Date: 20100212
  Receipt Date: 20100129
  Transmission Date: 20100710
  Serious: Yes (Hospitalization)
  Sender: FDA-Public Use
  Company Number: 2009SP038863

PATIENT

DRUGS (5)
  1. LORATADINE [Suspect]
     Indication: DRUG USE FOR UNKNOWN INDICATION
     Dosage: 50 MG;TID
     Dates: start: 20080901
  2. PIRIBEDIL (PIRIBEDIL) [Suspect]
     Indication: DRUG USE FOR UNKNOWN INDICATION
     Dosage: 50 MG;TID
     Dates: start: 20080901
  3. AZILECT [Suspect]
     Indication: DRUG USE FOR UNKNOWN INDICATION
     Dosage: 1 MG;QD
     Dates: start: 20050401
  4. SINEMET [Suspect]
     Indication: DRUG USE FOR UNKNOWN INDICATION
     Dosage: 100 MG
     Dates: start: 20070801
  5. TASMAR [Suspect]
     Indication: DRUG USE FOR UNKNOWN INDICATION
     Dosage: 100 MG;TID
     Dates: start: 20070801

REACTIONS (1)
  - THERAPY REGIMEN CHANGED [None]
